FAERS Safety Report 10677764 (Version 1)
Quarter: 2014Q4

REPORT INFORMATION
  Report Type: Spontaneous
  Country: JP (occurrence: JP)
  Receive Date: 20141229
  Receipt Date: 20141229
  Transmission Date: 20150529
  Serious: Yes (Other)
  Sender: FDA-Public Use
  Company Number: JP-CIPLA LTD.-2014JP02818

PATIENT

DRUGS (7)
  1. GRANISETRON [Suspect]
     Active Substance: GRANISETRON
     Indication: ENDOMETRIAL CANCER
     Dosage: 75 UG DAILY FOR 10 DAYS IN PATIENTS EXPERIENCING NEUTROPHIL COUNTS { 500/MM3 ON DAY 3 OR 8
     Route: 058
  2. APREPITANT. [Concomitant]
     Active Substance: APREPITANT
  3. DOXORUBICIN [Suspect]
     Active Substance: DOXORUBICIN
     Indication: ENDOMETRIAL CANCER
     Dosage: 45 MG/M2 (IN 50 ML SALINE, INFUSED OVER 30 MIN), REPEAT EVERY 21 DAYS FOR SIX CYCLES
     Route: 042
  4. CISPLATIN. [Suspect]
     Active Substance: CISPLATIN
     Indication: ENDOMETRIAL CANCER
     Dosage: 50 MG/M2 (IN 500 ML SALINE, INFUSED OVER 2 H) ON DAY 1, REPEAT EVERY 21 DAYS FOR SIX CYCLES
  5. PACLITAXEL. [Suspect]
     Active Substance: PACLITAXEL
     Indication: ENDOMETRIAL CANCER
     Dosage: 160 MG/M2 (IN 500 ML SALINE, INFUSED OVER 3 H) ON DAY 2, REPEAT EVERY 21 DAYS FOR SIX CYCLES
     Route: 042
  6. PALONOSETRON [Concomitant]
     Active Substance: PALONOSETRON
     Indication: ANTIEMETIC SUPPORTIVE CARE
  7. DEXAMETHASONE. [Concomitant]
     Active Substance: DEXAMETHASONE
     Indication: ANTIALLERGIC THERAPY

REACTIONS (1)
  - Neutropenia [Unknown]
